FAERS Safety Report 23637806 (Version 5)
Quarter: 2025Q1

REPORT INFORMATION
  Report Type: Spontaneous
  Country: US (occurrence: US)
  Receive Date: 20240315
  Receipt Date: 20250108
  Transmission Date: 20250408
  Serious: Yes (Hospitalization, Other)
  Sender: SANOFI AVENTIS
  Company Number: US-SA-SAC20240314000457

PATIENT
  Age: 58 Year
  Sex: Male

DRUGS (1)
  1. REZUROCK [Suspect]
     Active Substance: BELUMOSUDIL
     Indication: Chronic graft versus host disease
     Dosage: 200 MG, QD
     Route: 048
     Dates: start: 20240219

REACTIONS (5)
  - Pneumonia [Unknown]
  - Hospitalisation [Unknown]
  - Pruritus [Unknown]
  - Tremor [Unknown]
  - Cough [Unknown]

NARRATIVE: CASE EVENT DATE: 20240101
